FAERS Safety Report 20645400 (Version 1)
Quarter: 2022Q1

REPORT INFORMATION
  Report Type: Spontaneous
  Country: US (occurrence: None)
  Receive Date: 20220328
  Receipt Date: 20220328
  Transmission Date: 20220423
  Serious: Yes (Disabling)
  Sender: FDA-Public Use
  Company Number: None

PATIENT
  Age: 39 Year
  Sex: Female
  Weight: 86.4 kg

DRUGS (3)
  1. SUBOXONE [Suspect]
     Active Substance: BUPRENORPHINE HYDROCHLORIDE\NALOXONE HYDROCHLORIDE
     Indication: Drug use disorder
     Dosage: OTHER QUANTITY : 1 BUCCAL FILM;?FREQUENCY : DAILY;?
     Route: 060
     Dates: start: 20080201, end: 20220328
  2. MODAFINIL [Concomitant]
  3. CLONIDINE [Concomitant]
     Active Substance: CLONIDINE

REACTIONS (5)
  - Tooth disorder [None]
  - Tooth loss [None]
  - Tooth infection [None]
  - Mental disorder [None]
  - Eye contusion [None]

NARRATIVE: CASE EVENT DATE: 20220325
